FAERS Safety Report 8517791-0 (Version None)
Quarter: 2012Q3

REPORT INFORMATION
  Report Type: 
  Country: None (occurrence: None)
  Receive Date: 20120718
  Receipt Date: 20120709
  Transmission Date: 20120928
  Serious: Yes (Other)
  Sender: FDA-Public Use
  Company Number: US-ASTRAZENECA-2011SE49496

PATIENT
  Age: 74 Year
  Sex: Female

DRUGS (7)
  1. DUONEB [Concomitant]
  2. ALLEGRA [Concomitant]
  3. NEXIUM [Suspect]
     Route: 048
  4. COMBIVENT [Concomitant]
  5. ADVAIR DISKUS 100/50 [Concomitant]
  6. NEBULIZER [Concomitant]
  7. SYMBICORT [Suspect]
     Indication: ASTHMA
     Dosage: 160/4.5 MCG, ONE PUFF TWO TIMES A DAY
     Route: 055
     Dates: start: 20080101

REACTIONS (12)
  - SYNCOPE [None]
  - DRUG EFFECT DECREASED [None]
  - CHRONIC OBSTRUCTIVE PULMONARY DISEASE [None]
  - HAND FRACTURE [None]
  - DYSPNOEA [None]
  - LUNG INFECTION [None]
  - PAIN [None]
  - EAR INFECTION [None]
  - DRUG DOSE OMISSION [None]
  - DRUG INEFFECTIVE [None]
  - RESPIRATORY FAILURE [None]
  - INCORRECT DOSE ADMINISTERED [None]
